FAERS Safety Report 18148109 (Version 3)
Quarter: 2021Q2

REPORT INFORMATION
  Report Type: Spontaneous
  Country: US (occurrence: US)
  Receive Date: 20200813
  Receipt Date: 20210609
  Transmission Date: 20210717
  Serious: Yes (Hospitalization, Other)
  Sender: FDA-Public Use
  Company Number: US-BIOGEN-2020BI00908030

PATIENT
  Sex: Female

DRUGS (5)
  1. TECFIDERA [Suspect]
     Active Substance: DIMETHYL FUMARATE
     Dosage: MAINTENANCE DOSE
     Route: 048
     Dates: end: 202104
  2. TECFIDERA [Suspect]
     Active Substance: DIMETHYL FUMARATE
     Dosage: STARTING DOSE
     Route: 048
  3. TECFIDERA [Suspect]
     Active Substance: DIMETHYL FUMARATE
     Indication: MULTIPLE SCLEROSIS
     Dosage: MAINTENANCE DOSE
     Route: 048
     Dates: start: 20140612
  4. WARFARIN [Concomitant]
     Active Substance: WARFARIN
     Indication: PULMONARY EMBOLISM
     Route: 065
  5. TECFIDERA [Suspect]
     Active Substance: DIMETHYL FUMARATE
     Dosage: MAINTENANCE DOSE
     Route: 048
     Dates: start: 20140612, end: 20210418

REACTIONS (17)
  - Abdominal pain [Unknown]
  - Haematoma [Unknown]
  - Asthenia [Unknown]
  - Post procedural infection [Unknown]
  - Blood glucose abnormal [Unknown]
  - Mobility decreased [Unknown]
  - Appendicitis perforated [Unknown]
  - Malaise [Unknown]
  - Blood viscosity decreased [Unknown]
  - Multiple sclerosis [Unknown]
  - Dyspepsia [Unknown]
  - Multiple sclerosis relapse [Recovered/Resolved]
  - Mobility decreased [Unknown]
  - Back disorder [Unknown]
  - Weight increased [Unknown]
  - Hypoaesthesia [Unknown]
  - Procedural pain [Unknown]

NARRATIVE: CASE EVENT DATE: 2017
